FAERS Safety Report 11256946 (Version 1)
Quarter: 2015Q3

REPORT INFORMATION
  Report Type: Spontaneous
  Country: US (occurrence: US)
  Receive Date: 20150709
  Receipt Date: 20150709
  Transmission Date: 20151125
  Serious: No
  Sender: FDA-Public Use
  Company Number: US-PURDUE-USA-2014-0119166

PATIENT
  Sex: Female

DRUGS (5)
  1. BUTRANS [Suspect]
     Active Substance: BUPRENORPHINE
     Indication: PAIN
     Dosage: 20 MCG/HR, WEEKLY
     Route: 062
     Dates: start: 20150521
  2. BUTRANS [Suspect]
     Active Substance: BUPRENORPHINE
     Indication: FIBROMYALGIA
  3. BUTRANS [Suspect]
     Active Substance: BUPRENORPHINE
     Indication: SYSTEMIC LUPUS ERYTHEMATOSUS
  4. BUTRANS [Suspect]
     Active Substance: BUPRENORPHINE
     Indication: INTERVERTEBRAL DISC PROTRUSION
     Dosage: 20 MCG/HR, WEEKLY
     Route: 062
     Dates: start: 201503
  5. BUTRANS [Suspect]
     Active Substance: BUPRENORPHINE
     Indication: UTERINE ENLARGEMENT
     Dosage: 10 MCG/HR, WEEKLY
     Route: 062
     Dates: start: 20141004, end: 201503

REACTIONS (6)
  - Inadequate analgesia [Unknown]
  - Pain [Unknown]
  - Application site rash [Unknown]
  - Product adhesion issue [Unknown]
  - Application site pruritus [Unknown]
  - Wrong technique in product usage process [Unknown]
